FAERS Safety Report 16352511 (Version 2)
Quarter: 2019Q2

REPORT INFORMATION
  Report Type: Spontaneous
  Country: CA (occurrence: CA)
  Receive Date: 20190524
  Receipt Date: 20190603
  Transmission Date: 20190711
  Serious: Yes (Other)
  Sender: FDA-Public Use
  Company Number: CA-PFIZER INC-2019218722

PATIENT
  Age: 43 Year
  Sex: Female

DRUGS (2)
  1. METHOTREXATE SODIUM. [Suspect]
     Active Substance: METHOTREXATE SODIUM
     Dosage: 25 MG, WEEKLY
     Dates: start: 20181218
  2. HYDROXYCHLOROQUINE [HYDROXYCHLOROQUINE SULFATE] [Concomitant]
     Active Substance: HYDROXYCHLOROQUINE SULFATE
     Dosage: 400 MG, 1X/DAY

REACTIONS (1)
  - Latent tuberculosis [Unknown]
